FAERS Safety Report 11257872 (Version 1)
Quarter: 2015Q3

REPORT INFORMATION
  Report Type: Not Available
  Country: SE (occurrence: SE)
  Receive Date: 20150710
  Receipt Date: 20150710
  Transmission Date: 20151125
  Serious: Yes (Life-Threatening, Hospitalization)
  Sender: FDA-Public Use
  Company Number: SE-BEH-2015052312

PATIENT
  Age: 83 Year
  Sex: Male

DRUGS (6)
  1. MESTINON 60 MG COATED TABLET [Concomitant]
     Route: 048
     Dates: start: 20140509
  2. KININ RECIP 250 MG FILM-COATED TABLET [Concomitant]
  3. LOPERAMID MYLAN 2 MG CAPSULLE HARD [Concomitant]
  4. INOTYOL SALVA [Concomitant]
     Route: 061
  5. PRIVIGEN [Suspect]
     Active Substance: HUMAN IMMUNOGLOBULIN G
     Indication: MYASTHENIA GRAVIS
     Dosage: DURING THREE CONSECUTIVE INPATIENT CARE TIMES (HOSPITAL TREATMENT VISIT)
     Route: 042
     Dates: start: 20150616, end: 20150620
  6. PANODIL 500 MG FILM-COATED TABLET [Concomitant]
     Route: 048
     Dates: start: 20140917

REACTIONS (2)
  - Leukopenia [Not Recovered/Not Resolved]
  - Neutropenia [Not Recovered/Not Resolved]

NARRATIVE: CASE EVENT DATE: 20150622
